FAERS Safety Report 5851352-7 (Version None)
Quarter: 2008Q3

REPORT INFORMATION
  Report Type: 
  Country: None (occurrence: None)
  Receive Date: 20080820
  Receipt Date: 20080813
  Transmission Date: 20090109
  Serious: Yes (Hospitalization)
  Sender: FDA-Public Use
  Company Number: US-MERCK-0808USA02415

PATIENT
  Age: 70 Year
  Sex: Female

DRUGS (6)
  1. FOSAMAX [Suspect]
     Indication: OSTEOPOROSIS
     Route: 048
     Dates: start: 20020101, end: 20080501
  2. PRILOSEC [Concomitant]
     Route: 048
  3. ZANTAC [Concomitant]
     Route: 065
  4. ZOCOR [Concomitant]
     Route: 048
  5. [THERAPY UNSPECIFIED] [Concomitant]
     Route: 065
  6. FORTEO [Concomitant]
     Route: 065

REACTIONS (3)
  - CELLULITIS [None]
  - DRUG INEFFECTIVE [None]
  - SPINAL COMPRESSION FRACTURE [None]
